FAERS Safety Report 13210267 (Version 1)
Quarter: 2017Q1

REPORT INFORMATION
  Report Type: Spontaneous
  Country: US (occurrence: US)
  Receive Date: 20170209
  Receipt Date: 20170209
  Transmission Date: 20170428
  Serious: No
  Sender: FDA-Public Use
  Company Number: US-ACTELION-A-NJ2017-149655

PATIENT
  Age: 69 Year
  Sex: Female

DRUGS (1)
  1. VALCHLOR [Suspect]
     Active Substance: MECHLORETHAMINE
     Indication: MYCOSIS FUNGOIDES
     Dosage: UNK
     Route: 061
     Dates: start: 20150421

REACTIONS (4)
  - Alopecia [Unknown]
  - Dry skin [Unknown]
  - Skin burning sensation [Unknown]
  - Disease progression [Unknown]
